FAERS Safety Report 7529066-7 (Version None)
Quarter: 2011Q2

REPORT INFORMATION
  Report Type: 
  Country: None (occurrence: None)
  Receive Date: 20110607
  Receipt Date: 20110524
  Transmission Date: 20111010
  Serious: Yes (Other)
  Sender: FDA-Public Use
  Company Number: US-AMGEN-US327194

PATIENT
  Sex: Female

DRUGS (11)
  1. TERAZOSIN HCL [Concomitant]
  2. ALPRAZOLAM [Concomitant]
  3. HYDROCHLOROTHIAZIDE [Concomitant]
  4. SOTALOL HCL [Concomitant]
  5. LISINOPRIL [Concomitant]
  6. NPLATE [Suspect]
     Dates: start: 20081104, end: 20090612
  7. OMEPRAZOLE [Concomitant]
  8. NPLATE [Suspect]
     Indication: IDIOPATHIC THROMBOCYTOPENIC PURPURA
     Dosage: 10 A?G/KG, QWK
     Dates: start: 20081104, end: 20090609
  9. ALENDRONATE SODIUM [Concomitant]
  10. ZOLPIDEM TARTRATE [Concomitant]
  11. POTASSIUM CHLORIDE [Concomitant]

REACTIONS (1)
  - DRUG INEFFECTIVE [None]
